FAERS Safety Report 25115870 (Version 1)
Quarter: 2025Q1

REPORT INFORMATION
  Report Type: Spontaneous
  Country: US (occurrence: US)
  Receive Date: 20250325
  Receipt Date: 20250325
  Transmission Date: 20250409
  Serious: No
  Sender: GLAXOSMITHKLINE
  Company Number: US-GSK-US2025026655

PATIENT
  Age: 72 Year
  Sex: Female
  Weight: 68.04 kg

DRUGS (1)
  1. NUCALA [Suspect]
     Active Substance: MEPOLIZUMAB
     Indication: Sinus polyp degeneration
     Dosage: 100 MG/ML, MO
     Route: 058
     Dates: start: 2023

REACTIONS (3)
  - Secretion discharge [Unknown]
  - Product dose omission issue [Unknown]
  - Product use in unapproved indication [Unknown]

NARRATIVE: CASE EVENT DATE: 20250101
